FAERS Safety Report 7056361-0 (Version None)
Quarter: 2010Q4

REPORT INFORMATION
  Report Type: 
  Country: None (occurrence: None)
  Receive Date: 20101021
  Receipt Date: 20101019
  Transmission Date: 20110411
  Serious: Yes (Disabling)
  Sender: FDA-Public Use
  Company Number: AU-WYE-G06829410

PATIENT
  Age: 55 Year
  Sex: Male

DRUGS (7)
  1. PRISTIQ [Suspect]
     Indication: DEPRESSION
     Dosage: 50MG ONCE A DAY IN THE MORNING
     Route: 048
  2. SYMBICORT [Concomitant]
  3. NEXIUM [Concomitant]
  4. PREDNISOLONE [Concomitant]
     Dosage: UNKNOWN
  5. ZYRTEC [Concomitant]
     Dosage: PRN
  6. ALCOHOL [Interacting]
     Dosage: 1-2 STANDARD DRINKS
  7. ALVESCO [Concomitant]

REACTIONS (3)
  - ALCOHOL INTERACTION [None]
  - LOSS OF CONSCIOUSNESS [None]
  - PERSONALITY CHANGE [None]
